FAERS Safety Report 22054930 (Version 1)
Quarter: 2023Q1

REPORT INFORMATION
  Report Type: Spontaneous
  Country: US (occurrence: US)
  Receive Date: 20230302
  Receipt Date: 20230302
  Transmission Date: 20230418
  Serious: Yes (Death, Hospitalization)
  Sender: FDA-Public Use
  Company Number: US-TEVA-2023-US-2859617

PATIENT
  Age: 50 Year
  Sex: Male

DRUGS (4)
  1. NOREPINEPHRINE [Suspect]
     Active Substance: NOREPINEPHRINE
     Indication: Toxicity to various agents
     Route: 065
  2. AMPHETAMINE [Suspect]
     Active Substance: AMPHETAMINE
     Indication: Product used for unknown indication
     Route: 065
  3. CALCIUM [Suspect]
     Active Substance: CALCIUM
     Indication: Toxicity to various agents
     Route: 065
  4. SODIUM BICARBONATE [Suspect]
     Active Substance: SODIUM BICARBONATE
     Indication: Toxicity to various agents
     Route: 065

REACTIONS (16)
  - Toxicity to various agents [Fatal]
  - Drug ineffective [Fatal]
  - Sympathomimetic effect [Fatal]
  - Tachycardia [Fatal]
  - Hyperthermia [Fatal]
  - Pneumonitis aspiration [Fatal]
  - Respiratory depression [Fatal]
  - Hyperreflexia [Fatal]
  - Clonus [Fatal]
  - Metabolic acidosis [Fatal]
  - Anion gap [Fatal]
  - Intestinal ischaemia [Fatal]
  - Coagulopathy [Fatal]
  - Thrombocytopenia [Fatal]
  - Acute kidney injury [Fatal]
  - Rhabdomyolysis [Fatal]
